FAERS Safety Report 10076646 (Version 1)
Quarter: 2014Q2

REPORT INFORMATION
  Report Type: Spontaneous
  Country: US (occurrence: US)
  Receive Date: 20140414
  Receipt Date: 20140414
  Transmission Date: 20141212
  Serious: No
  Sender: FDA-Public Use
  Company Number: US-PFIZER INC-2014103578

PATIENT
  Age: 87 Year
  Sex: Female
  Weight: 54.42 kg

DRUGS (3)
  1. ZOLOFT [Suspect]
     Indication: NERVOUSNESS
     Dosage: 100 MG, DAILY
     Dates: start: 2000
  2. DETROL LA [Suspect]
     Dosage: UNK
  3. LEVOTHYROXINE [Concomitant]
     Indication: THYROID DISORDER
     Dosage: 75 UG, UNK

REACTIONS (1)
  - Bronchitis [Unknown]
